FAERS Safety Report 12306911 (Version 2)
Quarter: 2016Q2

REPORT INFORMATION
  Report Type: Spontaneous
  Country: US (occurrence: US)
  Receive Date: 20160426
  Receipt Date: 20160609
  Transmission Date: 20160815
  Serious: Yes (Hospitalization)
  Sender: FDA-Public Use
  Company Number: US-BAYER-2016-079597

PATIENT
  Age: 34 Year
  Sex: Female
  Weight: 72.56 kg

DRUGS (2)
  1. MIRENA [Suspect]
     Active Substance: LEVONORGESTREL
     Indication: CONTRACEPTION
     Dosage: 20 MCG/24HR, CONT
     Route: 015
     Dates: start: 20140807, end: 20151208
  2. MIRENA [Suspect]
     Active Substance: LEVONORGESTREL
     Indication: MENORRHAGIA

REACTIONS (11)
  - Pelvic discomfort [None]
  - Post procedural discomfort [None]
  - Depression [None]
  - Anxiety [None]
  - Mental disorder [None]
  - Pelvic pain [None]
  - Injury [None]
  - Genital haemorrhage [None]
  - Uterine perforation [None]
  - Emotional disorder [None]
  - Procedural pain [None]

NARRATIVE: CASE EVENT DATE: 201512
